FAERS Safety Report 5912364-8 (Version None)
Quarter: 2008Q4

REPORT INFORMATION
  Report Type: 
  Country: None (occurrence: None)
  Receive Date: 20081007
  Receipt Date: 20081007
  Transmission Date: 20090506
  Serious: Yes (Life-Threatening, Other)
  Sender: FDA-Public Use
  Company Number: None

PATIENT
  Age: 32 Year
  Sex: Female
  Weight: 83.9154 kg

DRUGS (2)
  1. CYMBALTA [Suspect]
     Indication: ANXIETY
     Dosage: 60MG  ONCE DAILY OTHER
     Route: 050
     Dates: start: 20080515, end: 20081006
  2. CYMBALTA [Suspect]
     Indication: DEPRESSION
     Dosage: 60MG  ONCE DAILY OTHER
     Route: 050
     Dates: start: 20080515, end: 20081006

REACTIONS (1)
  - DIZZINESS [None]
